FAERS Safety Report 23565823 (Version 1)
Quarter: 2024Q1

REPORT INFORMATION
  Report Type: Spontaneous
  Country: GB (occurrence: GB)
  Receive Date: 20240226
  Receipt Date: 20240226
  Transmission Date: 20240409
  Serious: Yes (Other)
  Sender: FDA-Public Use
  Company Number: None

PATIENT

DRUGS (5)
  1. LANSOPRAZOLE [Suspect]
     Active Substance: LANSOPRAZOLE
     Indication: Dyspepsia
     Dates: start: 20240207
  2. ATORVASTATIN [Concomitant]
     Active Substance: ATORVASTATIN
     Dates: start: 20240207
  3. CARBIMAZOLE [Concomitant]
     Active Substance: CARBIMAZOLE
     Dates: start: 20231013
  4. CHOLECALCIFEROL [Concomitant]
     Active Substance: CHOLECALCIFEROL
     Indication: Vitamin supplementation
     Dates: start: 20231013
  5. ESTRIOL [Concomitant]
     Active Substance: ESTRIOL
     Dates: start: 20231013

REACTIONS (1)
  - Angioedema [Recovering/Resolving]
